FAERS Safety Report 9807248 (Version 2)
Quarter: 2014Q1

REPORT INFORMATION
  Report Type: Spontaneous
  Country: US (occurrence: US)
  Receive Date: 20140110
  Receipt Date: 20140203
  Transmission Date: 20141002
  Serious: Yes (Death, Hospitalization)
  Sender: FDA-Public Use
  Company Number: US-BIOGENIDEC-2014BI000347

PATIENT
  Age: 51 Year
  Sex: Female

DRUGS (14)
  1. TECFIDERA [Suspect]
     Indication: MULTIPLE SCLEROSIS
     Route: 048
     Dates: start: 20130901, end: 20130907
  2. TECFIDERA [Suspect]
     Indication: MULTIPLE SCLEROSIS
     Route: 048
     Dates: start: 20130908, end: 20131228
  3. METFORMIN [Concomitant]
  4. CYMBALTA [Concomitant]
  5. LAMICTAL [Concomitant]
  6. LISINOPRIL [Concomitant]
     Route: 048
  7. RIBOFLAVIN [Concomitant]
  8. ZOLPIDEM [Concomitant]
  9. BACLOFEN [Concomitant]
  10. NEURONTIN [Concomitant]
  11. ADDERALL [Concomitant]
  12. HYDROCODONE [Concomitant]
  13. ACETAMINOPHEN [Concomitant]
  14. ASPIRIN [Concomitant]

REACTIONS (1)
  - Cerebral infarction [Fatal]
